FAERS Safety Report 5353827-6 (Version None)
Quarter: 2007Q2

REPORT INFORMATION
  Report Type: 
  Country: None (occurrence: None)
  Receive Date: 20070521
  Receipt Date: 20070127
  Transmission Date: 20071010
  Serious: No
  Sender: FDA-Public Use
  Company Number: WAES 0701USA04706

PATIENT
  Age: 66 Year
  Sex: Male
  Weight: 99.7913 kg

DRUGS (1)
  1. JANUVIA [Suspect]
     Indication: DIABETES MELLITUS NON-INSULIN-DEPENDENT
     Dosage: 100 MG/DAILY/PO
     Route: 048
     Dates: start: 20061218, end: 20061221

REACTIONS (3)
  - ABDOMINAL DISTENSION [None]
  - DIARRHOEA [None]
  - MALAISE [None]
